FAERS Safety Report 4412848-8 (Version None)
Quarter: 2004Q3

REPORT INFORMATION
  Report Type: 
  Country: None (occurrence: None)
  Receive Date: 20040730
  Receipt Date: 20040730
  Transmission Date: 20050211
  Serious: Yes (Death)
  Sender: FDA-Public Use
  Company Number: None

PATIENT
  Age: 15 Year
  Sex: Male
  Weight: 70.3075 kg

DRUGS (1)
  1. EFFEXOR [Suspect]
     Indication: ATTENTION DEFICIT/HYPERACTIVITY DISORDER
     Dosage: 37.5 MG QD ORAL
     Route: 048
     Dates: start: 20031123, end: 20031208

REACTIONS (3)
  - COMPLETED SUICIDE [None]
  - FATIGUE [None]
  - HEADACHE [None]
